FAERS Safety Report 21395947 (Version 2)
Quarter: 2022Q4

REPORT INFORMATION
  Report Type: Report from Study
  Country: US (occurrence: US)
  Receive Date: 20220930
  Receipt Date: 20221003
  Transmission Date: 20230113
  Serious: Yes (Death, Life-Threatening, Hospitalization)
  Sender: FDA-Public Use
  Company Number: US-SECURA BIO, INC.-2022-SECUR-US000106

PATIENT

DRUGS (2)
  1. DUVELISIB [Suspect]
     Active Substance: DUVELISIB
     Indication: Laryngeal cancer
     Dosage: 25 MG, BID
     Route: 048
     Dates: start: 20220715, end: 20220910
  2. DOCETAXEL [Suspect]
     Active Substance: DOCETAXEL
     Indication: Laryngeal cancer
     Dosage: 120 MG/M2, Q21 DAYS
     Route: 042
     Dates: start: 20220722, end: 20220902

REACTIONS (2)
  - Disease progression [Fatal]
  - Diverticulitis [Not Recovered/Not Resolved]

NARRATIVE: CASE EVENT DATE: 20220910
